FAERS Safety Report 24077872 (Version 3)
Quarter: 2024Q3

REPORT INFORMATION
  Report Type: Spontaneous
  Country: US (occurrence: US)
  Receive Date: 20240711
  Receipt Date: 20240813
  Transmission Date: 20241016
  Serious: No
  Sender: ROCHE
  Company Number: US-ROCHE-10000019117

PATIENT
  Sex: Female

DRUGS (1)
  1. XOLAIR [Suspect]
     Active Substance: OMALIZUMAB
     Indication: Asthma
     Dosage: 300 MG/ 2ML
     Route: 058
     Dates: start: 202405

REACTIONS (3)
  - Wrong technique in product usage process [Unknown]
  - Device defective [Unknown]
  - No adverse event [Unknown]
